FAERS Safety Report 18697520 (Version 4)
Quarter: 2021Q1

REPORT INFORMATION
  Report Type: Report from Study
  Country: None (occurrence: CA)
  Receive Date: 20210105
  Receipt Date: 20210131
  Transmission Date: 20210419
  Serious: Yes (Hospitalization)
  Sender: FDA-Public Use
  Company Number: CA-ABBVIE-20K-028-3713831-00

PATIENT
  Age: 36 Year
  Sex: Female

DRUGS (1)
  1. SKYRIZI [Suspect]
     Active Substance: RISANKIZUMAB-RZAA
     Indication: PSORIASIS
     Route: 058
     Dates: start: 20201223

REACTIONS (27)
  - Eye swelling [Recovered/Resolved]
  - Arthralgia [Unknown]
  - Chills [Recovered/Resolved]
  - Paraesthesia oral [Unknown]
  - Vomiting [Not Recovered/Not Resolved]
  - Swelling face [Recovered/Resolved]
  - Drooling [Recovered/Resolved]
  - Dysgeusia [Not Recovered/Not Resolved]
  - Hypoaesthesia oral [Recovered/Resolved]
  - Asthenia [Recovered/Resolved]
  - Nausea [Recovered/Resolved]
  - Dyspnoea [Recovered/Resolved]
  - Psoriasis [Not Recovered/Not Resolved]
  - Fatigue [Unknown]
  - Upper respiratory tract infection [Recovered/Resolved]
  - Muscle spasms [Not Recovered/Not Resolved]
  - Arthropathy [Not Recovered/Not Resolved]
  - Visual impairment [Not Recovered/Not Resolved]
  - Dehydration [Unknown]
  - Paraesthesia oral [Recovered/Resolved]
  - Dizziness [Unknown]
  - Genital lesion [Unknown]
  - Pain in extremity [Unknown]
  - Vomiting [Recovered/Resolved]
  - Blood phosphorus decreased [Unknown]
  - Alopecia [Not Recovered/Not Resolved]
  - General symptom [Recovering/Resolving]

NARRATIVE: CASE EVENT DATE: 202012
